FAERS Safety Report 6325788-4 (Version None)
Quarter: 2009Q3

REPORT INFORMATION
  Report Type: 
  Country: None (occurrence: None)
  Receive Date: 20090824
  Receipt Date: 20090819
  Transmission Date: 20100115
  Serious: Yes (Hospitalization)
  Sender: FDA-Public Use
  Company Number: JP-BAYER-200910209BYL

PATIENT
  Age: 62 Year
  Sex: Male
  Weight: 60 kg

DRUGS (5)
  1. NEXAVAR [Suspect]
     Indication: RENAL CELL CARCINOMA STAGE IV
     Dosage: TOTAL DAILY DOSE: 800 MG  UNIT DOSE: 200 MG
     Route: 048
     Dates: start: 20090106, end: 20090119
  2. NEXAVAR [Suspect]
     Dosage: TOTAL DAILY DOSE: 400 MG  UNIT DOSE: 200 MG
     Route: 048
     Dates: start: 20090130
  3. NORVASC [Concomitant]
     Route: 048
     Dates: start: 20090105, end: 20090501
  4. BLOPRESS [Concomitant]
     Route: 048
     Dates: start: 20090217, end: 20090501
  5. FRANDOL [Concomitant]
     Route: 062
     Dates: start: 20090501

REACTIONS (5)
  - DRUG ERUPTION [None]
  - HYPERTENSION [None]
  - LIVER DISORDER [None]
  - PALMAR-PLANTAR ERYTHRODYSAESTHESIA SYNDROME [None]
  - TYPE 2 DIABETES MELLITUS [None]
